FAERS Safety Report 23991594 (Version 1)
Quarter: 2024Q2

REPORT INFORMATION
  Report Type: Spontaneous
  Country: US (occurrence: US)
  Receive Date: 20240619
  Receipt Date: 20240619
  Transmission Date: 20240716
  Serious: No
  Sender: FDA-Public Use
  Company Number: US-PURDUE-USA-2024-0310232

PATIENT
  Age: 69 Year
  Sex: Female
  Weight: 88 kg

DRUGS (2)
  1. ACETAMINOPHEN\OXYCODONE HYDROCHLORIDE [Suspect]
     Active Substance: ACETAMINOPHEN\OXYCODONE HYDROCHLORIDE
     Indication: Pain
     Dosage: 2 TABLET, THIS MORNING
     Route: 048
     Dates: start: 20240531
  2. TIZANIDINE [Concomitant]
     Active Substance: TIZANIDINE
     Indication: Neuralgia
     Dosage: UNK
     Route: 065

REACTIONS (2)
  - Drug ineffective [Unknown]
  - Product shape issue [Unknown]

NARRATIVE: CASE EVENT DATE: 20240601
